FAERS Safety Report 11099536 (Version 3)
Quarter: 2015Q3

REPORT INFORMATION
  Report Type: Spontaneous
  Country: AR (occurrence: AR)
  Receive Date: 20150508
  Receipt Date: 20150901
  Transmission Date: 20151125
  Serious: Yes (Other)
  Sender: FDA-Public Use
  Company Number: AR-AMGEN-ARGSP2015044689

PATIENT
  Age: 60 Year
  Sex: Female

DRUGS (2)
  1. ENBREL [Suspect]
     Active Substance: ETANERCEPT
     Indication: RHEUMATOID ARTHRITIS
     Dosage: 25 MG, EVERY 4 DAYS
     Route: 065
     Dates: start: 20120630
  2. ENBREL [Suspect]
     Active Substance: ETANERCEPT
     Dosage: 25 MG, WEEKLY
     Route: 065

REACTIONS (7)
  - Thrombosis [Recovering/Resolving]
  - Abasia [Unknown]
  - Mobility decreased [Unknown]
  - Rheumatoid arthritis [Unknown]
  - Bone pain [Unknown]
  - Phlebitis [Recovering/Resolving]
  - Gait disturbance [Recovering/Resolving]

NARRATIVE: CASE EVENT DATE: 201502
